FAERS Safety Report 8615871-2 (Version None)
Quarter: 2012Q3

REPORT INFORMATION
  Report Type: 
  Country: None (occurrence: None)
  Receive Date: 20120823
  Receipt Date: 20120816
  Transmission Date: 20120928
  Serious: Yes (Hospitalization)
  Sender: FDA-Public Use
  Company Number: AU-ROCHE-1104941

PATIENT
  Sex: Female
  Weight: 70 kg

DRUGS (4)
  1. HYDROCORTISONE [Concomitant]
  2. DALTEPARIN SODIUM [Concomitant]
  3. CEFTRIAXONE [Suspect]
     Indication: PRODUCT USED FOR UNKNOWN INDICATION
     Route: 042
     Dates: start: 20120513, end: 20120515
  4. DOXYCYCLINE HCL [Concomitant]

REACTIONS (2)
  - RASH [None]
  - RENAL IMPAIRMENT [None]
